FAERS Safety Report 6218624-8 (Version None)
Quarter: 2009Q2

REPORT INFORMATION
  Report Type: 
  Country: None (occurrence: None)
  Receive Date: 20090608
  Receipt Date: 20090601
  Transmission Date: 20091009
  Serious: Yes (Hospitalization)
  Sender: FDA-Public Use
  Company Number: US-ROCHE-635968

PATIENT
  Age: 39 Year
  Sex: Female

DRUGS (8)
  1. KLONOPIN [Suspect]
     Route: 065
  2. CLONAZEPAM [Suspect]
     Route: 065
     Dates: end: 20080301
  3. CLONAZEPAM [Suspect]
     Dosage: INCREASED DOSAGE
     Route: 065
  4. ZOLOFT [Suspect]
     Indication: DRUG USE FOR UNKNOWN INDICATION
     Route: 065
  5. IMIPRAMINE [Suspect]
     Indication: DRUG USE FOR UNKNOWN INDICATION
     Route: 065
  6. EFFEXOR [Concomitant]
  7. LAMOTRIGINE [Concomitant]
  8. DIAZEPAM [Concomitant]

REACTIONS (3)
  - APHASIA [None]
  - COGNITIVE DISORDER [None]
  - HOSPITALISATION [None]
